FAERS Safety Report 4535789-4 (Version None)
Quarter: 2004Q4

REPORT INFORMATION
  Report Type: 
  Country: None (occurrence: None)
  Receive Date: 20041223
  Receipt Date: 20040315
  Transmission Date: 20050328
  Serious: No
  Sender: FDA-Public Use
  Company Number: US-GLAXOSMITHKLINE-A0502850A

PATIENT
  Sex: Male

DRUGS (3)
  1. FLONASE [Suspect]
     Indication: ILL-DEFINED DISORDER
     Dosage: 1SPR PER DAY
     Route: 045
     Dates: start: 20031101
  2. SODIUM CHLORIDE [Concomitant]
  3. AMBIEN [Concomitant]

REACTIONS (3)
  - ILL-DEFINED DISORDER [None]
  - MALAISE [None]
  - MEDICATION ERROR [None]
